FAERS Safety Report 22947675 (Version 8)
Quarter: 2024Q2

REPORT INFORMATION
  Report Type: Report from Study
  Country: US (occurrence: US)
  Receive Date: 20230915
  Receipt Date: 20240524
  Transmission Date: 20240716
  Serious: Yes (Hospitalization, Other)
  Sender: FDA-Public Use
  Company Number: US-ACADIA PHARMACEUTICALS INC.-ACA-2023-TRF-003772

PATIENT
  Age: 17 Year
  Sex: Female

DRUGS (45)
  1. DAYBUE [Suspect]
     Active Substance: TROFINETIDE
     Indication: Rett syndrome
     Dosage: 50 MILLILITER, BID
     Route: 048
     Dates: start: 20230818
  2. DAYBUE [Suspect]
     Active Substance: TROFINETIDE
     Dosage: 60 MILLILITER
     Route: 048
     Dates: start: 20230919
  3. DAYBUE [Suspect]
     Active Substance: TROFINETIDE
     Dosage: 50 MILLILITER, BID
     Route: 048
     Dates: end: 20240201
  4. IMODIUM AD [Concomitant]
     Active Substance: LOPERAMIDE HYDROCHLORIDE
  5. TOPIRAMATE [Concomitant]
     Active Substance: TOPIRAMATE
     Dosage: 4 ML BY G-TUBE 2 TIMES A DAY FOR 90 DAYS
  6. NORETHINDRONE [Concomitant]
     Active Substance: NORETHINDRONE
     Dosage: 0.35MG (2 TABLETS BY G TUBE ONE TIME EACH DAY WITH BREAKFAST)
  7. CHOLECALCIFEROL [Concomitant]
     Active Substance: CHOLECALCIFEROL
  8. CLONIDINE [Concomitant]
     Active Substance: CLONIDINE
     Dosage: 0.1MG (TAKE 1 TABLET BY G TUBE EVERY NIGHT FOR 90 DAYS)
  9. ONDANSETRON [Concomitant]
     Active Substance: ONDANSETRON
     Indication: Nausea
     Dosage: 4 MILLIGRAM (1 TABLET BY MOUTH EVERY 8 HOURS IF NEEDED FOR UPTO 90 DAYS)
  10. ONDANSETRON [Concomitant]
     Active Substance: ONDANSETRON
     Indication: Vomiting
  11. VALACYCLOVIR [Concomitant]
     Active Substance: VALACYCLOVIR HYDROCHLORIDE
     Dosage: 500 MILLIGRAM
  12. FERROUS SULFATE [Concomitant]
     Active Substance: FERROUS SULFATE
     Dosage: 65 MILLIGRAM (1 TABLET BY NG TUBE 1 TIME EACH DAY WITH BREAKFAST)
  13. OXCARBAZEPINE [Concomitant]
     Active Substance: OXCARBAZEPINE
     Dosage: 300 MILLIGRAM (2 TABLETS BY MOUTH 2 TIMES A DAY)
  14. FAMOTIDINE [Concomitant]
     Active Substance: FAMOTIDINE
     Dosage: 20 MILLIGRAM (1 TABLET BY NG TUBE 2 TIMES A DAY)
  15. MIRALAX [Concomitant]
     Active Substance: POLYETHYLENE GLYCOL 3350
  16. SODIUM PICOSULFATE [Concomitant]
     Active Substance: SODIUM PICOSULFATE
  17. FOLIC ACID [Concomitant]
     Active Substance: FOLIC ACID
     Dosage: 1 MILLIGRAM (4 TABLETS BY NG TUBE ONE TIME EACH DAY)
  18. FOLIC ACID [Concomitant]
     Active Substance: FOLIC ACID
     Dosage: 1 MILLIGRAM (4 TABLETS BY G TUBE ONE TIME EACH DAY FOR 90 DAYS)
  19. METHOTREXATE [Concomitant]
     Active Substance: METHOTREXATE
     Dosage: 1 MILLILITER (UNDER THE SKIN ONE TIME PER WEEK  FOR 30 DAYS)
  20. MELOXICAM [Concomitant]
     Active Substance: MELOXICAM
     Indication: Pain
     Dosage: 7.5 MG (1 TABLET BY G TUBE EVERY 24 HOURS AS NEEDED)
  21. CLONAZEPAM [Concomitant]
     Active Substance: CLONAZEPAM
  22. ASCORBIC ACID [Concomitant]
     Active Substance: ASCORBIC ACID
  23. NAPROSYN [Concomitant]
     Active Substance: NAPROXEN
  24. MELATONIN [Concomitant]
     Active Substance: MELATONIN
     Dosage: 5 MILLIGRAM (TAKE 2 TABLETS BY G TUBE EVERY NIGHT FOR 90 DAYS)
  25. ACETAMINOPHEN [Concomitant]
     Active Substance: ACETAMINOPHEN
     Indication: Pain
     Dosage: 160MG/5ML (TAKE 20ML BY G-TUBE EVERY 6 HOURS AS NEEDED)
  26. ACETAMINOPHEN [Concomitant]
     Active Substance: ACETAMINOPHEN
     Indication: Headache
  27. ACETAMINOPHEN [Concomitant]
     Active Substance: ACETAMINOPHEN
     Indication: Pyrexia
  28. CLOBAZAM [Concomitant]
     Active Substance: CLOBAZAM
     Indication: Seizure
     Dosage: 2.5MG/ML (TAKE 6ML BY G-TUBE ONE TIME EACH DAY FOR 90 DAYS)
  29. CLOBAZAM [Concomitant]
     Active Substance: CLOBAZAM
     Indication: Rett syndrome
  30. LACTOBACILLUS ACIDOPHILUS [Concomitant]
     Active Substance: LACTOBACILLUS ACIDOPHILUS
     Dosage: 10 BILLION CELL CAPSULE (TAKE 1 CAPSULE BY NG TUBE ONE TIME EACH DAY)
  31. MIDAZOLAM [Concomitant]
     Active Substance: MIDAZOLAM
     Indication: Seizure
     Dosage: 5 MG/ML
  32. POLYETHYLENE GLYCOLS [Concomitant]
     Active Substance: POLYETHYLENE GLYCOLS
     Dosage: 17 GRAM (BY MOUTH EVERY 24 HOURS)
  33. SIMETHICONE (DIMETHICONE) [Concomitant]
     Active Substance: DIMETHICONE
     Indication: Flatulence
     Dosage: 20MG/0.3ML DROPS (TAKE 1.2 ML BY NG OR NJ TUBE EVERY 6 HOURS AS NEEDED)
  34. THIAMINE MONONITRATE [Concomitant]
     Active Substance: THIAMINE MONONITRATE
     Dosage: 100 MILLIGRAM, QD (G-TUBE FOR 90 DAYS)
  35. MEDICAL FOOD [Concomitant]
     Active Substance: MEDICAL FOOD
     Dosage: TAKE 1 PACKET BY G-TUBE 2 TIMES A DAY
  36. CHOLECALCIFEROL [Concomitant]
     Active Substance: CHOLECALCIFEROL
     Dosage: 1 MILLILITER BY NG TUBE 1 TIME EACH DAY FOR 90 DAYS
  37. NAYZILAM [Concomitant]
     Active Substance: MIDAZOLAM
     Indication: Seizure
     Dosage: 5MG/SPRAY (0.1 ML)
  38. CLOBAZAM [Concomitant]
     Active Substance: CLOBAZAM
     Indication: Myoclonus
     Dosage: 10 MILLIGRAM
  39. SIMETHICONE (DIMETHICONE) [Concomitant]
     Active Substance: DIMETHICONE
     Dosage: 80 MILLIGRAM
  40. TOPIRAMATE [Concomitant]
     Active Substance: TOPIRAMATE
     Dosage: 50 MILLIGRAM
  41. FAMOTIDINE [Concomitant]
     Active Substance: FAMOTIDINE
     Dosage: 5 ML BY G TUBE 2 TIMES A DAY FOR 90 DAYS
  42. FERROUS SULFATE [Concomitant]
     Active Substance: FERROUS SULFATE
     Dosage: 4.4 ML BY G TUBE ONE TIME EACH DAY WITH BREAKFAST FOR 90 DAYS
  43. OXCARBAZEPINE [Concomitant]
     Active Substance: OXCARBAZEPINE
     Dosage: 10 ML BY G TUBE 2 TIMES A DAY FOR 90 DAYS
  44. LOPERAMIDE [Concomitant]
     Active Substance: LOPERAMIDE
     Dosage: 2 MILLIGRAM
  45. METHOTREXATE [Concomitant]
     Active Substance: METHOTREXATE
     Dosage: 2.5 MG

REACTIONS (23)
  - Vitamin D decreased [Not Recovered/Not Resolved]
  - Vitamin B complex deficiency [Recovered/Resolved]
  - Chorea [Recovered/Resolved]
  - Diarrhoea [Recovered/Resolved]
  - Seizure [Unknown]
  - Seizure [Not Recovered/Not Resolved]
  - Decreased activity [Recovered/Resolved]
  - Sluggishness [Recovered/Resolved]
  - Asthenia [Recovered/Resolved]
  - Gastrointestinal motility disorder [Not Recovered/Not Resolved]
  - Somnolence [Not Recovered/Not Resolved]
  - Weight decreased [Not Recovered/Not Resolved]
  - Decreased eye contact [Not Recovered/Not Resolved]
  - Hypophagia [Unknown]
  - Asthenia [Unknown]
  - Vitamin D increased [Recovered/Resolved]
  - Fatigue [Not Recovered/Not Resolved]
  - Diarrhoea [Not Recovered/Not Resolved]
  - Fatigue [Not Recovered/Not Resolved]
  - Vomiting [Recovered/Resolved]
  - Diarrhoea [Recovered/Resolved]
  - Decreased appetite [Not Recovered/Not Resolved]
  - Diarrhoea [Unknown]

NARRATIVE: CASE EVENT DATE: 20230818
